FAERS Safety Report 25085968 (Version 1)
Quarter: 2025Q1

REPORT INFORMATION
  Report Type: Spontaneous
  Country: SE (occurrence: SE)
  Receive Date: 20250317
  Receipt Date: 20250317
  Transmission Date: 20250408
  Serious: Yes (Hospitalization)
  Sender: EISAI
  Company Number: None

PATIENT
  Age: 78 Year
  Sex: Male
  Weight: 80 kg

DRUGS (11)
  1. LENVIMA [Suspect]
     Active Substance: LENVATINIB
     Indication: Thyroid cancer metastatic
     Dates: start: 20241209, end: 20250311
  2. TARGINIQ ER [Concomitant]
     Active Substance: NALOXONE HYDROCHLORIDE\OXYCODONE HYDROCHLORIDE
     Indication: Product used for unknown indication
  3. Finasterid STADA [Concomitant]
     Indication: Product used for unknown indication
  4. ACETYLCYSTEINE [Concomitant]
     Active Substance: ACETYLCYSTEINE
     Indication: Product used for unknown indication
  5. LEVOTHYROXINE SODIUM [Concomitant]
     Active Substance: LEVOTHYROXINE SODIUM
     Indication: Product used for unknown indication
  6. RAMIPRIL [Concomitant]
     Active Substance: RAMIPRIL
     Indication: Product used for unknown indication
  7. BISOPROLOL FUMARATE [Concomitant]
     Active Substance: BISOPROLOL FUMARATE
     Indication: Product used for unknown indication
  8. Alfuzosin Orion [Concomitant]
     Indication: Product used for unknown indication
  9. ATORVASTATIN CALCIUM [Concomitant]
     Active Substance: ATORVASTATIN CALCIUM
     Indication: Product used for unknown indication
  10. ACLIDINIUM BROMIDE\FORMOTEROL FUMARATE [Concomitant]
     Active Substance: ACLIDINIUM BROMIDE\FORMOTEROL FUMARATE
     Indication: Product used for unknown indication
  11. LEVETIRACETAM [Concomitant]
     Active Substance: LEVETIRACETAM
     Indication: Product used for unknown indication

REACTIONS (2)
  - Epilepsy [Not Recovered/Not Resolved]
  - Traumatic subarachnoid haemorrhage [Not Recovered/Not Resolved]

NARRATIVE: CASE EVENT DATE: 20250105
